FAERS Safety Report 16711272 (Version 1)
Quarter: 2019Q4

REPORT INFORMATION
  Report Type: Spontaneous
  Country: US (occurrence: US)
  Receive Date: 20190816
  Receipt Date: 20190816
  Transmission Date: 20200122
  Serious: No
  Sender: FDA-Public Use
  Company Number: None

PATIENT
  Age: 64 Year
  Sex: Female

DRUGS (1)
  1. REPATHA [Suspect]
     Active Substance: EVOLOCUMAB
     Indication: HYPERLIPIDAEMIA
     Dosage: ?          OTHER FREQUENCY:EVERY 2 WEEKS;?
     Route: 058

REACTIONS (8)
  - Gait disturbance [None]
  - Back pain [None]
  - Pain in extremity [None]
  - Arthralgia [None]
  - Diarrhoea [None]
  - Nasopharyngitis [None]
  - Carpal tunnel syndrome [None]
  - Pain [None]

NARRATIVE: CASE EVENT DATE: 20190816
